FAERS Safety Report 24725896 (Version 3)
Quarter: 2025Q1

REPORT INFORMATION
  Report Type: Report from Study
  Country: US (occurrence: US)
  Receive Date: 20241212
  Receipt Date: 20250124
  Transmission Date: 20250409
  Serious: Yes (Other)
  Sender: ROCHE
  Company Number: US-ROCHE-10000154483

PATIENT
  Age: 46 Year
  Sex: Female

DRUGS (2)
  1. OCREVUS [Suspect]
     Active Substance: OCRELIZUMAB
     Indication: Multiple sclerosis
     Dosage: INITIAL DOSE WAS 300 MG AND THEN 15 DAYS LATER ANOTHER 300 MG. AFTER THIS TIME THE DOSE WAS 600 MG;
     Route: 042
     Dates: start: 20231108, end: 20240430
  2. GABAPENTIN [Concomitant]
     Active Substance: GABAPENTIN

REACTIONS (6)
  - JC virus infection [Unknown]
  - Pain in extremity [Recovered/Resolved]
  - Pain [Recovered/Resolved]
  - Neuralgia [Unknown]
  - Paraesthesia [Unknown]
  - Multiple sclerosis [Unknown]
